FAERS Safety Report 22162175 (Version 1)
Quarter: 2023Q1

REPORT INFORMATION
  Report Type: Spontaneous
  Country: TR (occurrence: TR)
  Receive Date: 20230331
  Receipt Date: 20230331
  Transmission Date: 20230418
  Serious: Yes (Other)
  Sender: FDA-Public Use
  Company Number: TR-PFM-2023-01796

PATIENT

DRUGS (22)
  1. PROPRANOLOL [Suspect]
     Active Substance: PROPRANOLOL HYDROCHLORIDE
     Indication: Bipolar disorder
     Dosage: 60 MG D-1
     Route: 065
  2. PROPRANOLOL [Suspect]
     Active Substance: PROPRANOLOL HYDROCHLORIDE
     Indication: Obsessive-compulsive disorder
     Dosage: 120 MG D-1
     Route: 065
  3. PROPRANOLOL [Suspect]
     Active Substance: PROPRANOLOL HYDROCHLORIDE
     Indication: Off label use
  4. CLOZAPINE [Suspect]
     Active Substance: CLOZAPINE
     Indication: Obsessive-compulsive disorder
     Dosage: 400 MG D-1
     Route: 065
     Dates: start: 2021
  5. CLOZAPINE [Suspect]
     Active Substance: CLOZAPINE
     Dosage: 600 MG D-1
     Route: 065
  6. CLOZAPINE [Suspect]
     Active Substance: CLOZAPINE
     Dosage: 675 MG D-1
     Route: 065
  7. LITHIUM [Suspect]
     Active Substance: LITHIUM
     Indication: Obsessive-compulsive disorder
     Dosage: 900-1200 MG D-1
     Route: 065
  8. VALPROATE SODIUM [Suspect]
     Active Substance: VALPROATE SODIUM
     Indication: Obsessive-compulsive disorder
     Dosage: 1250 MG D-1
     Route: 065
  9. VALPROATE SODIUM [Suspect]
     Active Substance: VALPROATE SODIUM
     Dosage: 2000 MG D-1
     Route: 065
  10. GABAPENTIN [Suspect]
     Active Substance: GABAPENTIN
     Indication: Obsessive-compulsive disorder
     Dosage: 900 MG D-1
     Route: 065
  11. BIPERIDEN [Suspect]
     Active Substance: BIPERIDEN
     Indication: Obsessive-compulsive disorder
     Dosage: 6 MG D-1
     Route: 065
  12. BIPERIDEN [Suspect]
     Active Substance: BIPERIDEN
     Dosage: 3 MG D-1
     Route: 065
  13. TROPICAMIDE [Suspect]
     Active Substance: TROPICAMIDE
     Indication: Salivary hypersecretion
     Dosage: 4 MG D-1
  14. FLUVOXAMINE [Suspect]
     Active Substance: FLUVOXAMINE
     Indication: Obsessive-compulsive disorder
     Dosage: UNK
     Route: 065
  15. FLUVOXAMINE [Suspect]
     Active Substance: FLUVOXAMINE
     Dosage: 300 MG D-1
     Route: 065
  16. FLUVOXAMINE [Suspect]
     Active Substance: FLUVOXAMINE
     Dosage: 100 MG D-1
     Route: 065
  17. CLOMIPRAMINE [Suspect]
     Active Substance: CLOMIPRAMINE
     Indication: Obsessive-compulsive disorder
     Dosage: UNK
     Route: 065
  18. CLOMIPRAMINE [Suspect]
     Active Substance: CLOMIPRAMINE
     Dosage: 225 MG D-1
     Route: 065
  19. ARIPIPRAZOLE [Suspect]
     Active Substance: ARIPIPRAZOLE
     Indication: Obsessive-compulsive disorder
     Dosage: 20 MG D-1
     Route: 065
  20. ARIPIPRAZOLE [Suspect]
     Active Substance: ARIPIPRAZOLE
     Dosage: 12 MG D-1
     Route: 065
  21. ARIPIPRAZOLE [Suspect]
     Active Substance: ARIPIPRAZOLE
     Dosage: 15 MG D-1
     Route: 065
  22. RISPERIDONE [Concomitant]
     Active Substance: RISPERIDONE
     Indication: Irritability
     Dosage: 1 MG D-1
     Route: 065

REACTIONS (10)
  - Schizoaffective disorder [Unknown]
  - Mania [Unknown]
  - SARS-CoV-2 test positive [Unknown]
  - Akathisia [Recovered/Resolved]
  - Obsessive-compulsive disorder [Unknown]
  - Condition aggravated [Unknown]
  - Therapy partial responder [Unknown]
  - Product administered to patient of inappropriate age [Unknown]
  - Product use in unapproved indication [Unknown]
  - Off label use [Unknown]

NARRATIVE: CASE EVENT DATE: 20220329
